FAERS Safety Report 4447931-4 (Version None)
Quarter: 2004Q3

REPORT INFORMATION
  Report Type: 
  Country: None (occurrence: None)
  Receive Date: 20040913
  Receipt Date: 20040331
  Transmission Date: 20050211
  Serious: Yes (Life-Threatening, Hospitalization)
  Sender: FDA-Public Use
  Company Number: US-ROCHE-363588

PATIENT
  Age: 51 Year
  Sex: Male
  Weight: 68 kg

DRUGS (6)
  1. PEGASYS [Suspect]
     Indication: HEPATITIS C
     Route: 058
     Dates: start: 20030606, end: 20040419
  2. COPEGUS [Suspect]
     Indication: HEPATITIS C
     Route: 048
     Dates: start: 20030606, end: 20040419
  3. FERROUS SULFATE TAB [Concomitant]
     Indication: IRON DEFICIENCY
     Route: 048
  4. VICOPROFEN [Concomitant]
     Route: 048
  5. BENADRYL [Concomitant]
     Route: 048
  6. EPOGEN [Concomitant]
     Dosage: STRENGTH REPORTED AS 40,000 UNITS.
     Route: 058

REACTIONS (15)
  - BACTERIAL INFECTION [None]
  - CARDIAC MURMUR [None]
  - DYSPNOEA [None]
  - ENDOCARDITIS BACTERIAL [None]
  - HAEMOGLOBIN DECREASED [None]
  - INJECTION SITE PAIN [None]
  - INSOMNIA [None]
  - MITRAL VALVE DISEASE [None]
  - RASH [None]
  - RASH PRURITIC [None]
  - RENAL FAILURE [None]
  - STAPHYLOCOCCAL BACTERAEMIA [None]
  - SUICIDAL IDEATION [None]
  - WEIGHT DECREASED [None]
  - WEIGHT GAIN POOR [None]
